FAERS Safety Report 15689103 (Version 1)
Quarter: 2018Q4

REPORT INFORMATION
  Report Type: Spontaneous
  Country: US (occurrence: US)
  Receive Date: 20181205
  Receipt Date: 20181205
  Transmission Date: 20190205
  Serious: No
  Sender: FDA-Public Use
  Company Number: US-BAUSCH-BL-2018-006381

PATIENT
  Age: 31 Year
  Sex: Female

DRUGS (2)
  1. UCERIS [Suspect]
     Active Substance: BUDESONIDE
     Indication: PRODUCT USED FOR UNKNOWN INDICATION
     Route: 048
     Dates: start: 20180301
  2. 5-ASA [Suspect]
     Active Substance: MESALAMINE
     Indication: PRODUCT USED FOR UNKNOWN INDICATION
     Route: 065
     Dates: start: 20180301

REACTIONS (2)
  - Rash [Unknown]
  - Pyrexia [Unknown]

NARRATIVE: CASE EVENT DATE: 201803
